FAERS Safety Report 4283627-X (Version None)
Quarter: 2004Q1

REPORT INFORMATION
  Report Type: 
  Country: None (occurrence: None)
  Receive Date: 20040129
  Receipt Date: 20040129
  Transmission Date: 20041129
  Serious: Yes (Hospitalization)
  Sender: FDA-Public Use
  Company Number: None

PATIENT
  Age: 37 Year
  Sex: Female
  Weight: 88.2 kg

DRUGS (16)
  1. NAPROSYN [Suspect]
     Indication: FIBROMYALGIA
     Dosage: 500 BID, CHRONIC
  2. LASIX [Suspect]
     Indication: OEDEMA PERIPHERAL
     Dosage: 80 QD
  3. NEURONTIN [Suspect]
     Indication: FIBROMYALGIA
     Dosage: 600 TID CHRONIC
  4. SPIRONOLACTONE [Suspect]
     Dosage: 100 QD
  5. FOLIC ACID [Concomitant]
  6. DARVON [Concomitant]
  7. DARVOCET [Concomitant]
  8. ZYRTEC [Concomitant]
  9. PAXIL [Concomitant]
  10. TRAZODONE HCL [Concomitant]
  11. ELAVIL [Concomitant]
  12. BUPROPION HCL [Concomitant]
  13. RISPERDAL [Concomitant]
  14. FLUCINONIDE [Concomitant]
  15. COTRIMAZOLE [Concomitant]
  16. SOMA [Concomitant]

REACTIONS (9)
  - AZOTAEMIA [None]
  - CHROMATURIA [None]
  - DECREASED APPETITE [None]
  - DEHYDRATION [None]
  - MENTAL STATUS CHANGES [None]
  - OVERDOSE [None]
  - SOMNOLENCE [None]
  - URINARY TRACT INFECTION [None]
  - URINE OUTPUT DECREASED [None]
